FAERS Safety Report 8179821-8 (Version None)
Quarter: 2012Q1

REPORT INFORMATION
  Report Type: 
  Country: None (occurrence: None)
  Receive Date: 20120229
  Receipt Date: 20120221
  Transmission Date: 20120608
  Serious: Yes (Hospitalization)
  Sender: FDA-Public Use
  Company Number: KV201200027

PATIENT
  Age: 50 Year
  Sex: Female

DRUGS (2)
  1. ETANERCEPT (ETANERCEPT) [Suspect]
     Indication: RHEUMATOID ARTHRITIS
  2. EVAMIST [Suspect]
     Indication: PRODUCT USED FOR UNKNOWN INDICATION
     Dosage: TRANSDERMAL
     Route: 062

REACTIONS (16)
  - BLOOD LACTATE DEHYDROGENASE INCREASED [None]
  - RENAL FAILURE ACUTE [None]
  - MALAISE [None]
  - ABDOMINAL PAIN [None]
  - RESPIRATORY DISORDER [None]
  - THROMBOCYTOPENIA [None]
  - HAEMOLYTIC URAEMIC SYNDROME [None]
  - MICROANGIOPATHY [None]
  - ASPARTATE AMINOTRANSFERASE INCREASED [None]
  - UNRESPONSIVE TO STIMULI [None]
  - CEREBRAL DISORDER [None]
  - CONTINUOUS HAEMODIAFILTRATION [None]
  - COLITIS [None]
  - CONVULSION [None]
  - DIARRHOEA HAEMORRHAGIC [None]
  - MENTAL STATUS CHANGES [None]
